FAERS Safety Report 5298118-7 (Version None)
Quarter: 2007Q2

REPORT INFORMATION
  Report Type: 
  Country: None (occurrence: None)
  Receive Date: 20070416
  Receipt Date: 20070405
  Transmission Date: 20071010
  Serious: Yes (Hospitalization)
  Sender: FDA-Public Use
  Company Number: US-ROCHE-491630

PATIENT
  Age: 71 Year
  Sex: Female

DRUGS (2)
  1. BONIVA [Suspect]
     Indication: OSTEOPOROSIS
     Route: 048
     Dates: start: 20070401
  2. PERCOCET [Concomitant]
     Dosage: REPORTED AS 1.5 TAB OD PRN
     Route: 065

REACTIONS (6)
  - CHILLS [None]
  - DIARRHOEA [None]
  - DYSPEPSIA [None]
  - NAUSEA [None]
  - PYREXIA [None]
  - VOMITING [None]
